FAERS Safety Report 24760163 (Version 1)
Quarter: 2024Q4

REPORT INFORMATION
  Report Type: Spontaneous
  Country: US (occurrence: US)
  Receive Date: 20241220
  Receipt Date: 20241220
  Transmission Date: 20250114
  Serious: Yes (Other)
  Sender: PFIZER
  Company Number: US-PFIZER INC-PV202400164754

PATIENT

DRUGS (2)
  1. BRENTUXIMAB VEDOTIN [Suspect]
     Active Substance: BRENTUXIMAB VEDOTIN
     Indication: Cutaneous T-cell lymphoma
     Dosage: UNK
     Dates: start: 20221011
  2. BRENTUXIMAB VEDOTIN [Suspect]
     Active Substance: BRENTUXIMAB VEDOTIN
     Dosage: 1.2 MG/KG, EVERY 3 WEEKS
     Dates: start: 202211, end: 202305

REACTIONS (3)
  - Neuropathy peripheral [Unknown]
  - Off label use [Unknown]
  - Drug effective for unapproved indication [Unknown]
